FAERS Safety Report 7278703-3 (Version None)
Quarter: 2011Q1

REPORT INFORMATION
  Report Type: 
  Country: None (occurrence: None)
  Receive Date: 20110207
  Receipt Date: 20110125
  Transmission Date: 20110831
  Serious: Yes (Other)
  Sender: FDA-Public Use
  Company Number: PHHY2011GB05791

PATIENT
  Age: 50 Year
  Sex: Female

DRUGS (7)
  1. BENDROFLUMETHIAZIDE [Concomitant]
     Dosage: 2.5 MG, UNK
  2. SERETIDE [Concomitant]
  3. AMLODIPINE [Concomitant]
  4. METFORMIN HCL [Concomitant]
  5. RAMIPRIL [Concomitant]
  6. SIMVASTATIN [Suspect]
     Indication: DIABETES MELLITUS
     Dosage: 40 MG, 1 1DAYS
     Dates: start: 20101008, end: 20101104
  7. VENTOLIN [Concomitant]

REACTIONS (1)
  - VISUAL ACUITY REDUCED [None]
